FAERS Safety Report 10995424 (Version 1)
Quarter: 2015Q2

REPORT INFORMATION
  Report Type: Spontaneous
  Country: US (occurrence: US)
  Receive Date: 20150407
  Receipt Date: 20150407
  Transmission Date: 20150821
  Serious: Yes (Other)
  Sender: FDA-Public Use
  Company Number: US-PFIZER INC-2015115949

PATIENT
  Age: 63 Year
  Sex: Female
  Weight: 60.77 kg

DRUGS (1)
  1. LYRICA [Suspect]
     Active Substance: PREGABALIN
     Indication: FIBROMYALGIA
     Dosage: 100 MG, 1X/DAY
     Route: 048

REACTIONS (11)
  - Malaise [Unknown]
  - Back pain [Unknown]
  - Fall [Unknown]
  - Facial pain [Unknown]
  - Muscle spasms [Unknown]
  - Pain in extremity [Unknown]
  - Arthralgia [Unknown]
  - Feeling abnormal [Unknown]
  - Myalgia [Unknown]
  - Pain [Unknown]
  - Upper limb fracture [Unknown]

NARRATIVE: CASE EVENT DATE: 201503
